FAERS Safety Report 13042501 (Version 1)
Quarter: 2016Q4

REPORT INFORMATION
  Report Type: Report from Study
  Country: GB (occurrence: GB)
  Receive Date: 20161219
  Receipt Date: 20161219
  Transmission Date: 20170207
  Serious: Yes (Hospitalization)
  Sender: FDA-Public Use
  Company Number: GB-VERTEX PHARMACEUTICALS-2016-005627

PATIENT

DRUGS (1)
  1. ORKAMBI [Suspect]
     Active Substance: IVACAFTOR\LUMACAFTOR
     Indication: CYSTIC FIBROSIS
     Route: 048

REACTIONS (18)
  - Oropharyngeal pain [Unknown]
  - C-reactive protein increased [Unknown]
  - PCO2 increased [Unknown]
  - Rash [Unknown]
  - Hypoxia [Unknown]
  - Gastrointestinal disorder [Unknown]
  - Haemoptysis [Unknown]
  - Anxiety [Unknown]
  - Myalgia [Unknown]
  - Asthenia [Unknown]
  - Vomiting [Unknown]
  - Dyspnoea [Unknown]
  - Headache [Unknown]
  - Chest discomfort [Unknown]
  - Pyrexia [Unknown]
  - Sputum increased [Unknown]
  - Supraventricular tachycardia [Unknown]
  - Nausea [Unknown]
